FAERS Safety Report 4529691-1 (Version None)
Quarter: 2004Q4

REPORT INFORMATION
  Report Type: 
  Country: None (occurrence: None)
  Receive Date: 20041130
  Receipt Date: 20040828
  Transmission Date: 20050328
  Serious: No
  Sender: FDA-Public Use
  Company Number: 702253

PATIENT
  Age: 57 Year
  Sex: Male

DRUGS (6)
  1. AMEVIVE [Suspect]
     Indication: PSORIASIS
     Dosage: 7.5 MG QW IM
     Route: 030
     Dates: start: 20040629
  2. NEORAL [Concomitant]
  3. SORIATANE [Concomitant]
  4. PLAVIX [Concomitant]
  5. ASPIRIN [Concomitant]
  6. LOPRESSOR [Concomitant]

REACTIONS (1)
  - OEDEMA PERIPHERAL [None]
